FAERS Safety Report 23247895 (Version 1)
Quarter: 2023Q4

REPORT INFORMATION
  Report Type: Spontaneous
  Country: GB (occurrence: GB)
  Receive Date: 20231130
  Receipt Date: 20231130
  Transmission Date: 20240109
  Serious: No
  Sender: FDA-Public Use
  Company Number: GB-GSKCCFEMEA-Case-01859516_AE-77606

PATIENT

DRUGS (1)
  1. SOTROVIMAB [Suspect]
     Active Substance: SOTROVIMAB
     Indication: Urticaria chronic
     Dosage: UNK

REACTIONS (1)
  - Therapeutic response unexpected [Unknown]
